FAERS Safety Report 24896806 (Version 1)
Quarter: 2025Q1

REPORT INFORMATION
  Report Type: Report from Study
  Country: US (occurrence: US)
  Receive Date: 20250128
  Receipt Date: 20250128
  Transmission Date: 20250408
  Serious: No
  Sender: ASTELLAS
  Company Number: US-ASTELLAS-2024US013463

PATIENT
  Sex: Female

DRUGS (2)
  1. FEZOLINETANT [Suspect]
     Active Substance: FEZOLINETANT
     Indication: Menopausal symptoms
     Dosage: 45 MG, ONCE DAILY
     Route: 048
     Dates: start: 20231220, end: 202405
  2. FEZOLINETANT [Suspect]
     Active Substance: FEZOLINETANT
     Dosage: 45 MG, ONCE DAILY
     Route: 048

REACTIONS (1)
  - Liver function test increased [Unknown]
